FAERS Safety Report 24614368 (Version 2)
Quarter: 2024Q4

REPORT INFORMATION
  Report Type: Spontaneous
  Country: CN (occurrence: CN)
  Receive Date: 20241113
  Receipt Date: 20241118
  Transmission Date: 20250115
  Serious: Yes (Death, Hospitalization, Disabling, Other)
  Sender: AMGEN
  Company Number: CN-AMGEN-CHNSP2024221775

PATIENT
  Age: 74 Year
  Sex: Male
  Weight: 62.9 kg

DRUGS (2)
  1. CARFILZOMIB [Suspect]
     Active Substance: CARFILZOMIB
     Indication: Neoplasm malignant
     Dosage: 30 MILLIGRAM
     Route: 040
     Dates: start: 20240606, end: 20240606
  2. DEXTROSE [Concomitant]
     Active Substance: DEXTROSE MONOHYDRATE
     Indication: Product used for unknown indication
     Dosage: 100 MILLILITER D1-2
     Route: 040
     Dates: start: 20240606, end: 20240606

REACTIONS (1)
  - Pulmonary arterial hypertension [Fatal]

NARRATIVE: CASE EVENT DATE: 20241105
